FAERS Safety Report 6258193-X (Version None)
Quarter: 2009Q3

REPORT INFORMATION
  Report Type: 
  Country: None (occurrence: None)
  Receive Date: 20090707
  Receipt Date: 20090701
  Transmission Date: 20100115
  Serious: Yes (Death, Hospitalization, Other)
  Sender: FDA-Public Use
  Company Number: JP-JNJFOC-20090303173

PATIENT
  Sex: Male
  Weight: 56 kg

DRUGS (18)
  1. DUROTEP MT [Suspect]
     Route: 062
  2. DUROTEP MT [Suspect]
     Route: 062
  3. DUROTEP MT [Suspect]
     Indication: CANCER PAIN
     Route: 062
  4. TAPENTADOL PR [Concomitant]
     Route: 048
  5. ALLOID G [Concomitant]
     Indication: GASTRIC ULCER
     Route: 048
  6. TAKEPRON [Concomitant]
     Indication: GASTRIC ULCER
     Route: 048
  7. NOVAMIN [Concomitant]
     Indication: VOMITING
     Route: 048
  8. MAGLAX [Concomitant]
     Indication: CONSTIPATION
     Route: 048
  9. HYPEN [Concomitant]
     Indication: CANCER PAIN
     Route: 048
  10. BFLUID [Concomitant]
     Route: 042
  11. BFLUID [Concomitant]
     Indication: DECREASED APPETITE
     Route: 042
  12. MORPHINE HYDROCHLORIDE [Concomitant]
     Indication: CANCER PAIN
     Route: 042
  13. MAXIPIME [Concomitant]
     Indication: INFECTION PROPHYLAXIS
     Route: 042
  14. OXYGEN [Concomitant]
     Dosage: 2-10L
     Route: 055
  15. PREDOPA [Concomitant]
     Indication: BLOOD PRESSURE MANAGEMENT
     Dosage: FLOWRATE 3ML AND 15ML/H
     Route: 042
  16. NEUTROGIN [Concomitant]
     Indication: BONE MARROW FAILURE
     Route: 042
  17. OXINORM [Concomitant]
     Indication: CANCER PAIN
     Route: 048
  18. FULCALIQ 2 [Concomitant]
     Indication: NUTRITIONAL SUPPORT
     Route: 042

REACTIONS (10)
  - ANAEMIA [None]
  - CONSTIPATION [None]
  - DIZZINESS [None]
  - DYSPNOEA [None]
  - GASTRIC CANCER [None]
  - LUNG NEOPLASM MALIGNANT [None]
  - MALAISE [None]
  - NAUSEA [None]
  - RESPIRATORY FAILURE [None]
  - VOMITING [None]
